FAERS Safety Report 9642549 (Version 1)
Quarter: 2013Q4

REPORT INFORMATION
  Report Type: Spontaneous
  Country: CA (occurrence: CA)
  Receive Date: 20131024
  Receipt Date: 20131024
  Transmission Date: 20140711
  Serious: Yes (Death)
  Sender: FDA-Public Use
  Company Number: CA-BAYER-2013-127137

PATIENT
  Age: 14 Year
  Sex: Female

DRUGS (2)
  1. YASMIN 28 [Suspect]
  2. YAZ [Suspect]

REACTIONS (3)
  - Pulmonary embolism [Fatal]
  - Myocardial infarction [Fatal]
  - Cerebral thrombosis [Fatal]
